FAERS Safety Report 7163095-0 (Version None)
Quarter: 2010Q4

REPORT INFORMATION
  Report Type: 
  Country: None (occurrence: None)
  Receive Date: 20101215
  Receipt Date: 20100224
  Transmission Date: 20110411
  Serious: Yes (Other)
  Sender: FDA-Public Use
  Company Number: PT-PFIZER INC-2010018857

PATIENT
  Age: 67 Year
  Sex: Female

DRUGS (8)
  1. LYRICA [Suspect]
     Indication: PAIN
     Dosage: 75 MG, 1X/DAY
     Route: 048
     Dates: start: 20100203
  2. LYRICA [Suspect]
     Indication: ANXIETY
  3. COAPROVEL [Concomitant]
     Indication: HYPERTENSION
     Dosage: 12.5/300, 1X/DAY
     Route: 048
     Dates: start: 20091119
  4. NORVASC [Concomitant]
     Indication: HYPERTENSION
     Dosage: 10 MG, 1X/DAY
     Route: 048
     Dates: start: 20091218
  5. ZARATOR ^PFIZER^ [Concomitant]
     Indication: DYSLIPIDAEMIA
     Dosage: 10 MG, 1X/DAY
     Route: 048
     Dates: start: 20091218
  6. STRONTIUM RANELATE [Concomitant]
     Indication: OSTEOPOROSIS
     Dosage: 2 G, 1X/DAY
     Route: 048
     Dates: start: 20070101
  7. PANTOPRAZOLE SODIUM [Concomitant]
     Indication: HIATUS HERNIA
     Dosage: 40 MG, 1X/DAY
     Route: 048
  8. DECALCIT [Concomitant]
     Dosage: UNK, 1X/DAY
     Route: 048

REACTIONS (2)
  - DIZZINESS [None]
  - FAECAL INCONTINENCE [None]
